FAERS Safety Report 5701562-4 (Version None)
Quarter: 2008Q2

REPORT INFORMATION
  Report Type: 
  Country: None (occurrence: None)
  Receive Date: 20080408
  Receipt Date: 20080329
  Transmission Date: 20081010
  Serious: Yes (Other)
  Sender: FDA-Public Use
  Company Number: CHPA2008US05756

PATIENT
  Sex: Female

DRUGS (1)
  1. MAALOX ANTACID/ANTIGAS RS LIQ COOL MINT (NCH)(MAGNESIUM HYDROXIDE, ALU [Suspect]
     Indication: STOMACH DISCOMFORT
     Dosage: 3 TSP, BID, ORAL
     Route: 048
     Dates: start: 20080325

REACTIONS (1)
  - FAECES DISCOLOURED [None]
